FAERS Safety Report 6054537-2 (Version None)
Quarter: 2009Q1

REPORT INFORMATION
  Report Type: 
  Country: None (occurrence: None)
  Receive Date: 20090127
  Receipt Date: 20090121
  Transmission Date: 20090719
  Serious: Yes (Death, Other)
  Sender: FDA-Public Use
  Company Number: PHHY2009JP02429

PATIENT
  Age: 3 Year
  Sex: Male

DRUGS (10)
  1. CYCLOSPORINE [Suspect]
     Indication: LYMPHOHISTIOCYTOSIS
  2. DEXAMETHASONE [Suspect]
     Indication: LYMPHOHISTIOCYTOSIS
  3. ETOPOSIDE [Suspect]
     Indication: LYMPHOHISTIOCYTOSIS
  4. ETOPOSIDE [Suspect]
     Indication: BONE MARROW TRANSPLANT
  5. BUSULFAN [Suspect]
     Indication: BONE MARROW TRANSPLANT
  6. BUSULFAN [Suspect]
     Indication: CORD BLOOD TRANSPLANT THERAPY
  7. CYCLOPHOSPHAMIDE [Suspect]
     Indication: BONE MARROW TRANSPLANT
  8. IDAMYCIN [Suspect]
     Indication: BONE MARROW TRANSPLANT
  9. FLUDARA [Suspect]
     Indication: CORD BLOOD TRANSPLANT THERAPY
  10. ALKERAN [Suspect]
     Indication: CORD BLOOD TRANSPLANT THERAPY

REACTIONS (2)
  - CYSTITIS HAEMORRHAGIC [None]
  - INTERSTITIAL LUNG DISEASE [None]
